FAERS Safety Report 11691000 (Version 2)
Quarter: 2015Q4

REPORT INFORMATION
  Report Type: Spontaneous
  Country: US (occurrence: US)
  Receive Date: 20151102
  Receipt Date: 20151222
  Transmission Date: 20160304
  Serious: No
  Sender: FDA-Public Use
  Company Number: US-GLAXOSMITHKLINE-US2015154087

PATIENT
  Age: 46 Year
  Sex: Female

DRUGS (1)
  1. NICODERM CQ [Suspect]
     Active Substance: NICOTINE
     Indication: SMOKING CESSATION THERAPY
     Dosage: 7 MG, UNK

REACTIONS (9)
  - Agitation [Recovered/Resolved]
  - Abnormal dreams [Unknown]
  - Withdrawal syndrome [Recovered/Resolved]
  - Wrong technique in product usage process [Not Recovered/Not Resolved]
  - Sleep disorder [Recovered/Resolved]
  - Moaning [Recovered/Resolved]
  - Nicotine dependence [Recovered/Resolved]
  - Irritability [Recovered/Resolved]
  - Insomnia [Recovered/Resolved]
